FAERS Safety Report 8013851-1 (Version None)
Quarter: 2011Q4

REPORT INFORMATION
  Report Type: 
  Country: None (occurrence: None)
  Receive Date: 20111229
  Receipt Date: 20111219
  Transmission Date: 20120403
  Serious: Yes (Hospitalization, Other)
  Sender: FDA-Public Use
  Company Number: PHHY2010CA01918

PATIENT
  Sex: Female

DRUGS (8)
  1. PREDNISONE TAB [Concomitant]
     Dosage: 5 MG, QD
  2. CRESTOR [Concomitant]
     Dosage: 20 MG, DAILY
  3. PROMETRIUM [Concomitant]
     Dosage: 100 MG, DAILY
  4. ESTROGEL [Concomitant]
     Dosage: 2 DF, DAILY
  5. SANDOSTATIN LAR [Suspect]
     Indication: PITUITARY TUMOUR
     Dosage: 30 MG, QMO
     Route: 030
     Dates: start: 20000501
  6. SYNTHROID [Concomitant]
     Dosage: 0.125 MG, QD
  7. LAMOTRIGINE [Concomitant]
     Dosage: 25 MG, BID
  8. DESMOPRESSIN ACETATE [Concomitant]
     Indication: DIABETES INSIPIDUS
     Dosage: 0.3 MG, TID

REACTIONS (5)
  - CONVULSION [None]
  - PAIN [None]
  - PETIT MAL EPILEPSY [None]
  - GRAND MAL CONVULSION [None]
  - GLOSSODYNIA [None]
